FAERS Safety Report 5328450-X (Version None)
Quarter: 2007Q2

REPORT INFORMATION
  Report Type: 
  Country: None (occurrence: None)
  Receive Date: 20070518
  Receipt Date: 20070508
  Transmission Date: 20071010
  Serious: Yes (Hospitalization)
  Sender: FDA-Public Use
  Company Number: ES-AMGEN-UK222024

PATIENT
  Age: 75 Year
  Sex: Female
  Weight: 52 kg

DRUGS (9)
  1. NEULASTA [Suspect]
     Indication: CHEMOTHERAPY
     Route: 058
     Dates: start: 20070220
  2. RITUXIMAB [Suspect]
     Route: 042
     Dates: start: 20070219
  3. ADRIAMYCIN PFS [Suspect]
     Route: 042
     Dates: start: 20070219
  4. VINCRISTINE [Suspect]
     Route: 042
     Dates: start: 20070219
  5. CYCLOPHOSPHAMIDE [Suspect]
     Route: 042
     Dates: start: 20070219
  6. PREDNISONE TAB [Suspect]
     Route: 042
     Dates: start: 20070219
  7. TARKA [Concomitant]
     Route: 048
     Dates: start: 20061201
  8. ASPIRIN [Concomitant]
     Route: 048
     Dates: start: 20030101
  9. ATORVASTATIN CALCIUM [Concomitant]
     Route: 048

REACTIONS (3)
  - BACTEROIDES INFECTION [None]
  - LUMBAR VERTEBRAL FRACTURE [None]
  - OSTEOMYELITIS [None]
